FAERS Safety Report 6007387-7 (Version None)
Quarter: 2008Q4

REPORT INFORMATION
  Report Type: 
  Country: None (occurrence: None)
  Receive Date: 20081217
  Receipt Date: 20080408
  Transmission Date: 20090506
  Serious: No
  Sender: FDA-Public Use
  Company Number: US-ASTRAZENECA-2008UW07047

PATIENT
  Age: 74 Year
  Sex: Female
  Weight: 54.4 kg

DRUGS (5)
  1. CRESTOR [Suspect]
     Indication: BLOOD CHOLESTEROL
     Route: 048
  2. CRESTOR [Suspect]
     Route: 048
  3. ACTIC [Concomitant]
  4. BENICAR [Concomitant]
  5. MIRAPEX [Concomitant]

REACTIONS (2)
  - MUSCLE SPASMS [None]
  - RESTLESS LEGS SYNDROME [None]
